FAERS Safety Report 5727352-4 (Version None)
Quarter: 2008Q2

REPORT INFORMATION
  Report Type: 
  Country: None (occurrence: None)
  Receive Date: 20080505
  Receipt Date: 20080423
  Transmission Date: 20081010
  Serious: Yes (Hospitalization, Other)
  Sender: FDA-Public Use
  Company Number: US-ROCHE-560573

PATIENT
  Sex: Male

DRUGS (5)
  1. PEG-INTERFERON A-2A (RO 25-8310) [Suspect]
     Dosage: PREFILLED SYRINGE
     Route: 065
     Dates: start: 20070729
  2. PEG-INTERFERON A-2A (RO 25-8310) [Suspect]
     Route: 065
  3. RIBAVIRIN [Suspect]
     Route: 065
     Dates: start: 20070729
  4. RIBAVIRIN [Suspect]
     Route: 065
  5. CELEXA [Concomitant]
     Indication: ANTIDEPRESSANT THERAPY

REACTIONS (4)
  - INJURY [None]
  - LOWER LIMB FRACTURE [None]
  - ROAD TRAFFIC ACCIDENT [None]
  - SUICIDAL IDEATION [None]
